FAERS Safety Report 4512730-1 (Version None)
Quarter: 2004Q4

REPORT INFORMATION
  Report Type: 
  Country: None (occurrence: None)
  Receive Date: 20040928
  Receipt Date: 20040621
  Transmission Date: 20050328
  Serious: No
  Sender: FDA-Public Use
  Company Number: 04P-163-0264391-00

PATIENT
  Age: 27 Year
  Sex: Female
  Weight: 98.8842 kg

DRUGS (6)
  1. HUMIRA [Suspect]
     Dosage: 40 MG, 1 IN 2 WK, SUBCUTANEOUS
     Route: 058
     Dates: start: 20030801, end: 20040401
  2. METHOTREXATE [Concomitant]
  3. ARTHROTEC [Concomitant]
  4. PREDNISONE [Concomitant]
  5. PROPACET 100 [Concomitant]
  6. FOLIC ACID [Concomitant]

REACTIONS (1)
  - HYPOAESTHESIA [None]
